FAERS Safety Report 22085516 (Version 1)
Quarter: 2023Q1

REPORT INFORMATION
  Report Type: Spontaneous
  Country: CN (occurrence: CN)
  Receive Date: 20230310
  Receipt Date: 20230310
  Transmission Date: 20230418
  Serious: Yes (Other)
  Sender: FDA-Public Use
  Company Number: CN-PFIZER INC-PV202300045522

PATIENT
  Age: 26 Year
  Sex: Female
  Weight: 50.8 kg

DRUGS (5)
  1. CARBOPROST TROMETHAMINE [Suspect]
     Active Substance: CARBOPROST TROMETHAMINE
     Indication: Uterine contractions abnormal
     Dosage: 250 UG, 1X/DAY
     Route: 030
     Dates: start: 20230218, end: 20230218
  2. CARBOPROST TROMETHAMINE [Suspect]
     Active Substance: CARBOPROST TROMETHAMINE
     Indication: Haemorrhage prophylaxis
  3. CARBOPROST TROMETHAMINE [Suspect]
     Active Substance: CARBOPROST TROMETHAMINE
     Indication: Postpartum haemorrhage
  4. CARBOPROST METHYL [Suspect]
     Active Substance: CARBOPROST METHYL
     Indication: Uterine contractions abnormal
     Dosage: 1 MG, 1X/DAY
     Route: 067
     Dates: start: 20230218, end: 20230218
  5. CARBOPROST METHYL [Suspect]
     Active Substance: CARBOPROST METHYL
     Indication: Haemorrhage prophylaxis

REACTIONS (3)
  - Abdominal pain [Recovered/Resolved]
  - Diarrhoea [Recovered/Resolved]
  - Off label use [Unknown]

NARRATIVE: CASE EVENT DATE: 20230218
